FAERS Safety Report 8013726-8 (Version None)
Quarter: 2011Q4

REPORT INFORMATION
  Report Type: 
  Country: None (occurrence: None)
  Receive Date: 20111229
  Receipt Date: 20111216
  Transmission Date: 20120403
  Serious: Yes (Hospitalization, Other)
  Sender: FDA-Public Use
  Company Number: US-ELI_LILLY_AND_COMPANY-US201101004510

PATIENT
  Sex: Female

DRUGS (18)
  1. FORTEO [Suspect]
     Dosage: 20 UG, QD
     Route: 058
  2. CALCIUM ACETATE [Concomitant]
  3. CARVEDILOL [Concomitant]
  4. FORTEO [Suspect]
     Dosage: 20 UG, QD
     Route: 058
  5. FISH OIL [Concomitant]
  6. FORTEO [Suspect]
     Dosage: 20 UG, QD
     Route: 058
  7. LISINOPRIL [Concomitant]
  8. CINNAMON [Concomitant]
  9. PRAVASTATIN [Concomitant]
  10. ANAESTHETICS [Concomitant]
  11. STOOL SOFTENER [Concomitant]
  12. FORTEO [Suspect]
     Indication: OSTEOPOROSIS
     Dosage: 20 UG, DAILY (1/D)
     Route: 058
  13. FORTEO [Suspect]
     Dosage: 20 UG, QD
     Route: 058
  14. SYMBICORT [Concomitant]
  15. VITAMIN D [Concomitant]
  16. GLUCERNA [Concomitant]
  17. GLUCOSAMINE CHONDROITIN [Concomitant]
  18. FORTEO [Suspect]
     Dosage: 20 UG, QD
     Route: 058

REACTIONS (14)
  - CARDIAC DISORDER [None]
  - LIVER DISORDER [None]
  - WEIGHT DECREASED [None]
  - INJECTION SITE PAIN [None]
  - EXOSTOSIS [None]
  - HEARING IMPAIRED [None]
  - LOOSE TOOTH [None]
  - CARDIOMEGALY [None]
  - CATARACT [None]
  - GLUCOSE TOLERANCE IMPAIRED [None]
  - IMPLANTABLE DEFIBRILLATOR INSERTION [None]
  - VISUAL IMPAIRMENT [None]
  - BLOOD CALCIUM ABNORMAL [None]
  - DRUG DOSE OMISSION [None]
